FAERS Safety Report 6441719-0 (Version None)
Quarter: 2009Q4

REPORT INFORMATION
  Report Type: 
  Country: None (occurrence: None)
  Receive Date: 20091116
  Receipt Date: 20091110
  Transmission Date: 20100525
  Serious: Yes (Other)
  Sender: FDA-Public Use
  Company Number: TW-ROXANE LABORATORIES, INC.-2009-RO-01153RO

PATIENT
  Age: 51 Year
  Sex: Female

DRUGS (9)
  1. RISPERIDONE [Suspect]
     Indication: SCHIZOPHRENIA, PARANOID TYPE
  2. RISPERIDONE [Suspect]
     Dosage: 2 MG
  3. TRIHEXYPHENIDYL HCL [Suspect]
     Indication: PARKINSONISM
  4. AMISULPIRIDE [Concomitant]
     Indication: SCHIZOPHRENIA, PARANOID TYPE
  5. QUETIAPINE [Concomitant]
     Indication: SCHIZOPHRENIA, PARANOID TYPE
  6. OLANZAPINE [Concomitant]
     Indication: SCHIZOPHRENIA, PARANOID TYPE
     Dosage: 10 MG
  7. OLANZAPINE [Concomitant]
     Dosage: 2.5 MG
  8. ARIPIPRAZOLE [Concomitant]
     Indication: SCHIZOPHRENIA, PARANOID TYPE
     Dosage: 10 MG
  9. ARIPIPRAZOLE [Concomitant]
     Dosage: 20 MG

REACTIONS (3)
  - BREAST CANCER [None]
  - PARKINSONISM [None]
  - TARDIVE DYSKINESIA [None]
